FAERS Safety Report 8989017 (Version 1)
Quarter: 2012Q4

REPORT INFORMATION
  Report Type: 
  Country: FR (occurrence: FR)
  Receive Date: 20121227
  Receipt Date: 20121227
  Transmission Date: 20130627
  Serious: Yes (Hospitalization)
  Sender: FDA-Public Use
  Company Number: FR-ABBOTT-12P-056-1023972-00

PATIENT
  Age: 59 Year
  Sex: Female

DRUGS (4)
  1. ZECLAR [Suspect]
     Indication: HELICOBACTER INFECTION
     Dosage: 500 mg twice
     Route: 048
     Dates: start: 20121105, end: 20121106
  2. AMOXICILLINE [Suspect]
     Indication: HELICOBACTER INFECTION
     Route: 048
     Dates: start: 20121105, end: 20121106
  3. TUSSIDANE [Suspect]
     Indication: PRODUCT USED FOR UNKNOWN INDICATION
     Route: 048
     Dates: start: 20121105, end: 20121106
  4. LANZOR [Suspect]
     Indication: PRODUCT USED FOR UNKNOWN INDICATION
     Route: 048
     Dates: start: 20121105, end: 20121106

REACTIONS (3)
  - Pyrexia [Unknown]
  - Rash maculo-papular [Recovered/Resolved]
  - Rash pustular [Recovered/Resolved]
